FAERS Safety Report 8084401-9 (Version None)
Quarter: 2012Q1

REPORT INFORMATION
  Report Type: 
  Country: None (occurrence: None)
  Receive Date: 20120128
  Receipt Date: 20110224
  Transmission Date: 20120608
  Serious: Yes (Hospitalization, Other)
  Sender: FDA-Public Use
  Company Number: US-ABBOTT-11P-163-0703745-00

PATIENT
  Age: 64 Year
  Sex: Female

DRUGS (7)
  1. HUMIRA [Suspect]
     Route: 058
     Dates: start: 20110101
  2. FOSAMAX [Concomitant]
     Indication: OSTEOPOROSIS
     Route: 048
  3. SULINDAC [Concomitant]
     Indication: INFLAMMATION
     Route: 048
  4. VITAMIN B-12 [Concomitant]
     Indication: BLOOD IRON DECREASED
     Route: 058
  5. HUMIRA [Suspect]
     Route: 058
     Dates: start: 20100901, end: 20101201
  6. HUMIRA [Suspect]
     Indication: RHEUMATOID ARTHRITIS
     Route: 058
     Dates: start: 20050101, end: 20100101
  7. ALDACTONE [Concomitant]
     Indication: HYPERTENSION
     Route: 048

REACTIONS (5)
  - INFECTION [None]
  - LOCALISED INFECTION [None]
  - INCORRECT DOSE ADMINISTERED [None]
  - WRONG TECHNIQUE IN DRUG USAGE PROCESS [None]
  - INJECTION SITE PAIN [None]
